FAERS Safety Report 10172596 (Version 3)
Quarter: 2014Q2

REPORT INFORMATION
  Report Type: Spontaneous
  Country: GB (occurrence: GB)
  Receive Date: 20140515
  Receipt Date: 20140519
  Transmission Date: 20141212
  Serious: Yes (Other)
  Sender: FDA-Public Use
  Company Number: GB-ABBVIE-14K-167-1229947-00

PATIENT
  Age: 39 Year
  Sex: Female

DRUGS (8)
  1. DEPAKOTE [Suspect]
     Indication: BIPOLAR DISORDER
  2. DEPAKOTE [Suspect]
     Dosage: DOSAGE DECREASED
     Route: 048
  3. LABETALOL [Concomitant]
     Indication: PRODUCT USED FOR UNKNOWN INDICATION
     Route: 048
  4. CITALOPRAM [Concomitant]
     Indication: PRODUCT USED FOR UNKNOWN INDICATION
     Route: 048
  5. VENLAFAXINE [Concomitant]
     Indication: PRODUCT USED FOR UNKNOWN INDICATION
     Route: 048
  6. CARBAMAZEPINE [Concomitant]
     Indication: PRODUCT USED FOR UNKNOWN INDICATION
     Route: 048
  7. IRBESARTAN [Concomitant]
     Indication: PRODUCT USED FOR UNKNOWN INDICATION
     Route: 048
  8. ZONEGRAN [Concomitant]
     Indication: PRODUCT USED FOR UNKNOWN INDICATION
     Route: 048

REACTIONS (1)
  - Deafness neurosensory [Recovering/Resolving]
